FAERS Safety Report 8248036-7 (Version None)
Quarter: 2012Q1

REPORT INFORMATION
  Report Type: 
  Country: None (occurrence: None)
  Receive Date: 20120330
  Receipt Date: 20120223
  Transmission Date: 20120608
  Serious: Yes (Other)
  Sender: FDA-Public Use
  Company Number: US-ROCHE-1018087

PATIENT
  Age: 72 Year
  Sex: Male
  Weight: 83 kg

DRUGS (25)
  1. MABTHERA [Suspect]
     Indication: MANTLE CELL LYMPHOMA
     Route: 042
     Dates: start: 20070111, end: 20071018
  2. LENALIDOMIDE [Suspect]
     Indication: MANTLE CELL LYMPHOMA
     Dates: start: 20080101, end: 20100920
  3. PAXIL [Concomitant]
  4. SYNTHROID [Concomitant]
  5. CLONAZEPAM [Concomitant]
  6. FERROUS GLUCONATE [Concomitant]
  7. MULTI-VITAMINS [Concomitant]
  8. TEMSIROLIMUS [Suspect]
     Indication: MANTLE CELL LYMPHOMA
     Dosage: 25 MG OVER 30 MIN
     Route: 042
     Dates: start: 20070111, end: 20071206
  9. ASPIRIN [Concomitant]
     Indication: MANTLE CELL LYMPHOMA
  10. LUTEIN [Concomitant]
  11. IPRATROPIUM [Concomitant]
  12. CIMETIDINE [Concomitant]
  13. VITAMIN E [Concomitant]
  14. GLOBULIN, IMMUNE HUMAN SERUM [Concomitant]
  15. SILYMARIN [Concomitant]
  16. GREEN TEA EXTRACT [Concomitant]
  17. POTASSIUM [Concomitant]
  18. CRANBERRY [Concomitant]
  19. MELATONIN [Concomitant]
  20. VITAMIN D [Concomitant]
  21. MAGNESIUM [Concomitant]
  22. VITAMIN B COMPLEX CAP [Concomitant]
  23. FISH OIL [Concomitant]
  24. COENZYME Q10 [Concomitant]
  25. NIACIN [Concomitant]

REACTIONS (2)
  - MYELODYSPLASTIC SYNDROME [None]
  - TREATMENT RELATED SECONDARY MALIGNANCY [None]
